FAERS Safety Report 20608601 (Version 1)
Quarter: 2022Q1

REPORT INFORMATION
  Report Type: Spontaneous
  Country: GB (occurrence: GB)
  Receive Date: 20220317
  Receipt Date: 20220317
  Transmission Date: 20220423
  Serious: Yes (Other)
  Sender: FDA-Public Use
  Company Number: None

PATIENT
  Age: 72 Year
  Sex: Male

DRUGS (2)
  1. DONEPEZIL HYDROCHLORIDE [Suspect]
     Active Substance: DONEPEZIL HYDROCHLORIDE
     Indication: Product used for unknown indication
     Dosage: 10MG
  2. FINASTERIDE [Suspect]
     Active Substance: FINASTERIDE
     Indication: Product used for unknown indication
     Dosage: 5MG ONE DAILY

REACTIONS (2)
  - Medication error [Unknown]
  - Blood pressure increased [Unknown]
